FAERS Safety Report 6079543-3 (Version None)
Quarter: 2009Q1

REPORT INFORMATION
  Report Type: 
  Country: None (occurrence: None)
  Receive Date: 20090217
  Receipt Date: 20090206
  Transmission Date: 20090719
  Serious: Yes (Other)
  Sender: FDA-Public Use
  Company Number: PHHY2009JP04532

PATIENT
  Age: 60 Year
  Sex: Female

DRUGS (5)
  1. FEMARA [Suspect]
     Indication: BREAST CANCER
     Dosage: 2.5 MG, QD
     Route: 048
     Dates: start: 20071201, end: 20081201
  2. ZOMETA [Suspect]
     Indication: BREAST CANCER
     Dosage: UNK
     Route: 042
     Dates: start: 20071201, end: 20090202
  3. TAKEPRON [Concomitant]
     Route: 048
  4. MUCOSTA [Concomitant]
     Route: 048
  5. STRONTIUM CHLORIDE SR-89 [Concomitant]
     Route: 042

REACTIONS (2)
  - CARDIAC FAILURE [None]
  - INTERSTITIAL LUNG DISEASE [None]
